FAERS Safety Report 15825545 (Version 1)
Quarter: 2019Q1

REPORT INFORMATION
  Report Type: Report from Study
  Country: US (occurrence: US)
  Receive Date: 20190115
  Receipt Date: 20190115
  Transmission Date: 20190417
  Serious: Yes (Other)
  Sender: FDA-Public Use
  Company Number: US-ROCHE-2244815

PATIENT
  Sex: Female
  Weight: 17.1 kg

DRUGS (14)
  1. CIPROFLOXACIN. [Concomitant]
     Active Substance: CIPROFLOXACIN
     Route: 065
     Dates: start: 20180420
  2. NYSTATIN. [Concomitant]
     Active Substance: NYSTATIN
     Dosage: 100000 UNIT/G
     Route: 061
     Dates: start: 20180419
  3. PREDNISOLONE. [Concomitant]
     Active Substance: PREDNISOLONE
     Dosage: 15 MG/5ML
     Route: 048
     Dates: start: 20180518
  4. VENTOLIN HFA [Concomitant]
     Active Substance: ALBUTEROL SULFATE
     Route: 065
     Dates: start: 20160307
  5. E.E.S. [Concomitant]
     Active Substance: ERYTHROMYCIN ETHYLSUCCINATE
     Dosage: GRANULES 200 MG/5 ML
     Route: 048
  6. ARMOUR THYROID [Concomitant]
     Active Substance: THYROID, PORCINE
     Route: 048
     Dates: start: 20180228
  7. QVAR [Concomitant]
     Active Substance: BECLOMETHASONE DIPROPIONATE
     Dosage: 80 MCG/ACUTATION
     Route: 065
     Dates: start: 20170824
  8. PREDNISOLONE. [Concomitant]
     Active Substance: PREDNISOLONE
     Dosage: 15 MG/5 ML
     Route: 048
     Dates: start: 20180222
  9. CEFDINIR. [Concomitant]
     Active Substance: CEFDINIR
     Dosage: 125 MG/5ML
     Route: 048
     Dates: start: 20180321
  10. CEFDINIR. [Concomitant]
     Active Substance: CEFDINIR
     Dosage: 250 MG/5 ML
     Route: 065
     Dates: start: 20180419
  11. NUTROPIN AQ [Suspect]
     Active Substance: SOMATROPIN
     Route: 058
     Dates: start: 20180913
  12. ALBUTEROL SULFATE. [Concomitant]
     Active Substance: ALBUTEROL SULFATE
     Dosage: 2.5 MG/3ML
     Route: 065
     Dates: start: 20170824
  13. NUTROPIN AQ [Suspect]
     Active Substance: SOMATROPIN
     Indication: GROWTH HORMONE DEFICIENCY
     Route: 058
     Dates: start: 20180818
  14. AMOXICILLIN/CLAVULANATE POTASSIUM [Concomitant]
     Active Substance: AMOXICILLIN\CLAVULANATE POTASSIUM
     Route: 065
     Dates: start: 20180222

REACTIONS (7)
  - Nocturia [Unknown]
  - Dry skin [Unknown]
  - Failure to thrive [Unknown]
  - Gastrooesophageal reflux disease [Unknown]
  - Snoring [Unknown]
  - Fatigue [Unknown]
  - Visual impairment [Unknown]
